FAERS Safety Report 18918627 (Version 5)
Quarter: 2021Q1

REPORT INFORMATION
  Report Type: Spontaneous
  Country: CA (occurrence: CA)
  Receive Date: 20210220
  Receipt Date: 20210325
  Transmission Date: 20210420
  Serious: Yes (Other)
  Sender: FDA-Public Use
  Company Number: CA-CELLTRION INC.-2020CA029764

PATIENT

DRUGS (8)
  1. INFLECTRA [Suspect]
     Active Substance: INFLIXIMAB-DYYB
     Dosage: 5 MG/KG, 0, 2, 6 WEEKS,  THEN EVERY 8 WEEKS
     Route: 042
     Dates: start: 20201016
  2. INFLECTRA [Suspect]
     Active Substance: INFLIXIMAB-DYYB
     Dosage: 5 MG/KG, 0, 2, 6 WEEKS,  THEN EVERY 8 WEEKS
     Route: 042
     Dates: start: 20201116
  3. NAPROSYN [Concomitant]
     Active Substance: NAPROXEN
     Dosage: 500 MG
     Route: 065
  4. CALCIUM [Concomitant]
     Active Substance: CALCIUM
     Dosage: 1 DF
     Route: 065
  5. INFLECTRA [Suspect]
     Active Substance: INFLIXIMAB-DYYB
     Dosage: 5 MG/KG, 0, 2, 6 WEEKS,  THEN EVERY 8 WEEKS
     Route: 042
     Dates: start: 20210111
  6. VITAMIN D [VITAMIN D NOS] [Concomitant]
     Active Substance: VITAMIN D NOS
     Dosage: 1 DF
     Route: 065
  7. INFLECTRA [Suspect]
     Active Substance: INFLIXIMAB-DYYB
     Dosage: 5 MG/KG EVERY 6 WEEKS
     Route: 042
     Dates: start: 20210218, end: 20210218
  8. INFLECTRA [Suspect]
     Active Substance: INFLIXIMAB-DYYB
     Indication: RHEUMATOID ARTHRITIS
     Dosage: 5 MG/KG, 0, 2, 6 WEEKS, THEN EVERY 8 WEEKS
     Route: 042
     Dates: start: 20200930, end: 20210111

REACTIONS (7)
  - Keratitis [Unknown]
  - Loss of personal independence in daily activities [Unknown]
  - Therapeutic response shortened [Unknown]
  - Treatment failure [Unknown]
  - Weight decreased [Unknown]
  - Off label use [Unknown]
  - Synovitis [Unknown]

NARRATIVE: CASE EVENT DATE: 20200930
